FAERS Safety Report 6765513-6 (Version None)
Quarter: 2010Q2

REPORT INFORMATION
  Report Type: 
  Country: None (occurrence: None)
  Receive Date: 20100611
  Receipt Date: 20100528
  Transmission Date: 20101027
  Serious: Yes (Other)
  Sender: FDA-Public Use
  Company Number: GB-RANBAXY-2010RR-34408

PATIENT
  Sex: Male

DRUGS (3)
  1. AMOXICILLIN [Suspect]
     Indication: INFECTION
  2. PHENOXYMETHYLPENICILLIN [Suspect]
  3. WARFARIN [Suspect]
     Indication: ATRIAL FIBRILLATION

REACTIONS (2)
  - DRUG INTERACTION [None]
  - THERAPEUTIC RESPONSE DECREASED [None]
